FAERS Safety Report 5744487-0 (Version None)
Quarter: 2008Q2

REPORT INFORMATION
  Report Type: 
  Country: None (occurrence: None)
  Receive Date: 20080520
  Receipt Date: 20080318
  Transmission Date: 20081010
  Serious: Yes (Death, Hospitalization, Other)
  Sender: FDA-Public Use
  Company Number: US-BAYER-200818186GPV

PATIENT

DRUGS (12)
  1. FLUDARABINE PHOSPHATE [Suspect]
     Indication: BONE MARROW CONDITIONING REGIMEN
     Route: 042
  2. CYCLOPHOSPHAMIDE [Suspect]
     Indication: BONE MARROW CONDITIONING REGIMEN
     Dosage: TOTAL DAILY DOSE: 40 MG/KG
     Route: 065
  3. RABBIT ANTI-THYMOCYTE GLOBULIN [Concomitant]
     Indication: PROPHYLAXIS AGAINST TRANSPLANT REJECTION
     Route: 065
  4. EQUINE ATG (ATGAM) [Concomitant]
     Indication: PROPHYLAXIS AGAINST TRANSPLANT REJECTION
     Route: 065
  5. ALEMTUZUMAB [Concomitant]
     Indication: PROPHYLAXIS AGAINST TRANSPLANT REJECTION
     Route: 065
  6. TACROLIMUS [Concomitant]
     Indication: GRAFT VERSUS HOST DISEASE
     Route: 065
  7. GRANULOCYTE COLONY-STIMULATING FACTOR (G-CSF) [Concomitant]
     Indication: PROPHYLAXIS AGAINST TRANSPLANT REJECTION
     Route: 065
  8. METHYLPREDNISOLONE [Concomitant]
     Indication: DRUG USE FOR UNKNOWN INDICATION
     Route: 065
  9. ACYCLOVIR SODIUM [Concomitant]
     Indication: ANTIVIRAL PROPHYLAXIS
  10. ANTIFUNGALS NOS [Concomitant]
     Indication: ANTIFUNGAL PROPHYLAXIS
  11. GANCICLOVIR [Concomitant]
     Indication: ANTIVIRAL PROPHYLAXIS
  12. FOSCARNET [Concomitant]
     Indication: ANTIVIRAL PROPHYLAXIS

REACTIONS (15)
  - ACUTE RESPIRATORY DISTRESS SYNDROME [None]
  - BACTERIAL SEPSIS [None]
  - CYTOMEGALOVIRUS VIRAEMIA [None]
  - DIARRHOEA [None]
  - ENTEROCOCCAL SEPSIS [None]
  - GRAFT VERSUS HOST DISEASE [None]
  - HYPOGAMMAGLOBULINAEMIA [None]
  - LYMPHOPROLIFERATIVE DISORDER [None]
  - MUCOSAL INFLAMMATION [None]
  - MULTI-ORGAN FAILURE [None]
  - RASH [None]
  - SEPTIC SHOCK [None]
  - TYPE 1 DIABETES MELLITUS [None]
  - VIRAL INFECTION [None]
  - VULVAL CANCER [None]
